FAERS Safety Report 7907552-5 (Version None)
Quarter: 2011Q4

REPORT INFORMATION
  Report Type: 
  Country: None (occurrence: None)
  Receive Date: 20111109
  Receipt Date: 20111109
  Transmission Date: 20120403
  Serious: Yes (Disabling)
  Sender: FDA-Public Use
  Company Number: None

PATIENT
  Sex: Male
  Weight: 70.3075 kg

DRUGS (1)
  1. AVODART [Suspect]
     Indication: PROSTATOMEGALY
     Dosage: 0.5 MG 1 PILL DAILY; ORAL
     Route: 048
     Dates: start: 20100410, end: 20110505

REACTIONS (10)
  - BACK PAIN [None]
  - HYPERKERATOSIS [None]
  - PAIN IN JAW [None]
  - DIZZINESS [None]
  - SEXUAL DYSFUNCTION [None]
  - BALANCE DISORDER [None]
  - ACTIVITIES OF DAILY LIVING IMPAIRED [None]
  - CONSTIPATION [None]
  - ABASIA [None]
  - RASH PRURITIC [None]
